FAERS Safety Report 10816497 (Version 1)
Quarter: 2015Q1

REPORT INFORMATION
  Report Type: Spontaneous
  Country: US (occurrence: US)
  Receive Date: 20150218
  Receipt Date: 20150218
  Transmission Date: 20150721
  Serious: Yes (Death)
  Sender: FDA-Public Use
  Company Number: US-BANPHARM-20153453

PATIENT
  Age: 37 Year
  Sex: Male

DRUGS (4)
  1. ACETONE [Suspect]
     Active Substance: ACETONE
  2. ETHANOL [Suspect]
     Active Substance: ALCOHOL
  3. DIPHENHYDRAMINE UNKNOWN PRODUCT [Suspect]
     Active Substance: DIPHENHYDRAMINE
     Route: 048
  4. DOXYLAMINE [Suspect]
     Active Substance: DOXYLAMINE

REACTIONS (2)
  - Drug abuse [Fatal]
  - Exposure via ingestion [None]
